FAERS Safety Report 5384217-8 (Version None)
Quarter: 2007Q3

REPORT INFORMATION
  Report Type: 
  Country: None (occurrence: None)
  Receive Date: 20070711
  Receipt Date: 20070703
  Transmission Date: 20080115
  Serious: Yes (Hospitalization)
  Sender: FDA-Public Use
  Company Number: D0053178A

PATIENT
  Age: 49 Year
  Sex: Male
  Weight: 57 kg

DRUGS (6)
  1. TRIZIVIR [Suspect]
     Indication: HIV INFECTION
     Dosage: 750MG TWICE PER DAY
     Route: 048
     Dates: start: 20040811, end: 20070425
  2. AMITRIPTYLINE HCL [Suspect]
     Indication: DEPRESSION
     Dosage: 75MG TWICE PER DAY
     Route: 048
  3. VIREAD [Concomitant]
     Indication: HIV INFECTION
     Dosage: 245MG PER DAY
     Route: 048
     Dates: start: 20040811, end: 20070425
  4. QUILONUM RETARD [Concomitant]
     Indication: DEPRESSION
     Dosage: 450MG TWICE PER DAY
     Route: 048
  5. ZOPICLON [Concomitant]
     Indication: DYSSOMNIA
     Dosage: 7.5MG PER DAY
     Route: 048
  6. PANTOZOL [Concomitant]
     Dosage: 40MG PER DAY
     Route: 048

REACTIONS (5)
  - ANAEMIA [None]
  - ASTHENIA [None]
  - BONE MARROW FAILURE [None]
  - DIZZINESS [None]
  - GAIT DISTURBANCE [None]
